FAERS Safety Report 9294558 (Version 1)
Quarter: 2013Q2

REPORT INFORMATION
  Report Type: Spontaneous
  Country: US (occurrence: US)
  Receive Date: 20130516
  Receipt Date: 20130516
  Transmission Date: 20140414
  Serious: Yes (Other)
  Sender: FDA-Public Use
  Company Number: US-PFIZER INC-2013146756

PATIENT
  Sex: Female
  Weight: 90.7 kg

DRUGS (2)
  1. REVATIO [Suspect]
     Indication: PULMONARY HYPERTENSION
     Dosage: 80 MG, 2X/DAY
  2. REMODULIN [Concomitant]
     Indication: HYPERTHYROIDISM
     Dosage: UNK, 1X/DAY

REACTIONS (3)
  - Pneumonia [Recovering/Resolving]
  - Osteoporosis [Recovering/Resolving]
  - Fluid retention [Recovering/Resolving]
